FAERS Safety Report 7714947-1 (Version None)
Quarter: 2011Q3

REPORT INFORMATION
  Report Type: 
  Country: None (occurrence: None)
  Receive Date: 20110829
  Receipt Date: 20110823
  Transmission Date: 20111222
  Serious: Yes (Other)
  Sender: FDA-Public Use
  Company Number: GB-PFIZER INC-2008160825

PATIENT
  Age: 50 Year
  Sex: Male

DRUGS (1)
  1. AMLODIPINE BESYLATE [Suspect]
     Indication: HYPERTENSION

REACTIONS (4)
  - CAPILLARITIS [None]
  - PURPURA [None]
  - HAEMATURIA [None]
  - HAEMATOSPERMIA [None]
